FAERS Safety Report 9184167 (Version 1)
Quarter: 2013Q1

REPORT INFORMATION
  Report Type: Spontaneous
  Country: US (occurrence: US)
  Receive Date: 20130322
  Receipt Date: 20130322
  Transmission Date: 20140127
  Serious: No
  Sender: FDA-Public Use
  Company Number: US-BRISTOL-MYERS SQUIBB COMPANY-16452195

PATIENT
  Age: 59 Year
  Sex: Male

DRUGS (4)
  1. ERBITUX [Suspect]
     Indication: COLON CANCER
     Dosage: 4-6 WKS?INTERRUPTED ON 7MAR12 AND RESTARTED ON 11APR12
     Dates: start: 20111109
  2. FOLINIC ACID [Suspect]
     Indication: COLON CANCER
  3. 5-FLUOROURACIL [Suspect]
     Indication: COLON CANCER
  4. IRINOTECAN [Suspect]
     Indication: COLON CANCER

REACTIONS (5)
  - Lip swelling [Unknown]
  - Stomatitis [Unknown]
  - Blister [Recovered/Resolved]
  - Dry skin [Unknown]
  - Skin fissures [Unknown]
